FAERS Safety Report 9087812 (Version 1)
Quarter: 2013Q1

REPORT INFORMATION
  Report Type: Spontaneous
  Country: US (occurrence: US)
  Receive Date: 20130201
  Receipt Date: 20130201
  Transmission Date: 20140127
  Serious: No
  Sender: FDA-Public Use
  Company Number: US-GALDERMA-US-GDP-12413613

PATIENT
  Age: 54 Year
  Sex: Female
  Weight: 88 kg

DRUGS (9)
  1. EPIDUO [Suspect]
     Indication: ACNE
     Route: 061
     Dates: start: 201111, end: 20120405
  2. EPIDUO (ADAPALENE) [Suspect]
     Route: 061
     Dates: start: 201009, end: 20120405
  3. EPIDUO [Suspect]
     Route: 061
     Dates: start: 20110407, end: 20120414
  4. COZAAR [Suspect]
     Indication: HYPERTENSION
     Route: 048
     Dates: start: 20120322
  5. CLONAZEPAM [Concomitant]
     Indication: ANXIETY
     Route: 048
     Dates: start: 2010
  6. WELLBUTRIN XL [Concomitant]
     Indication: DEPRESSION
     Route: 048
     Dates: start: 2010
  7. BENZOYL PEROXIDE [Concomitant]
     Indication: ACNE
     Dosage: AS NEEDED
     Route: 061
  8. EXTRA STRENGTH ESTROVEN [Concomitant]
     Indication: MENOPAUSE
     Route: 048
  9. TRIAZ 6% CLEANSER [Concomitant]
     Route: 061
     Dates: start: 20110407

REACTIONS (8)
  - Seborrhoea [Recovered/Resolved]
  - Rash [Recovered/Resolved]
  - Erythema [Recovered/Resolved]
  - Skin burning sensation [Recovered/Resolved]
  - Dry skin [Recovered/Resolved]
  - Pruritus [Recovered/Resolved]
  - Drug effect decreased [None]
  - Skin irritation [Recovered/Resolved]
